FAERS Safety Report 9393823 (Version 3)
Quarter: 2014Q2

REPORT INFORMATION
  Report Type: Report from Study
  Country: JP (occurrence: JP)
  Receive Date: 20130710
  Receipt Date: 20140422
  Transmission Date: 20141212
  Serious: Yes (Hospitalization)
  Sender: FDA-Public Use
  Company Number: JP-JNJFOC-20130703656

PATIENT
  Age: 68 Year
  Sex: Female
  Weight: 32 kg

DRUGS (17)
  1. SIMPONI [Suspect]
     Indication: RHEUMATOID ARTHRITIS
     Route: 058
     Dates: start: 20120127
  2. PREDNISOLONE [Concomitant]
     Indication: RHEUMATOID ARTHRITIS
     Route: 048
  3. VOLTAREN [Concomitant]
     Indication: RHEUMATOID ARTHRITIS
  4. NAPA [Concomitant]
     Indication: RHEUMATOID ARTHRITIS
     Route: 048
  5. INDOMETACIN [Concomitant]
     Indication: RHEUMATOID ARTHRITIS
  6. IMURAN [Concomitant]
     Indication: PROPHYLAXIS
     Route: 048
  7. PERSANTIN-L [Concomitant]
     Indication: HYPERTENSION
     Route: 048
  8. ADALAT [Concomitant]
     Indication: HYPERTENSION
     Route: 048
  9. LASIX [Concomitant]
     Indication: HYPERTENSION
  10. OLMETEC [Concomitant]
     Route: 048
  11. PARIET [Concomitant]
     Indication: PROPHYLAXIS
     Route: 048
  12. FERRUM [Concomitant]
     Indication: IRON DEFICIENCY ANAEMIA
     Route: 048
  13. PURSENNID [Concomitant]
     Indication: PROPHYLAXIS
     Route: 048
  14. ARGAMATE [Concomitant]
     Indication: RENAL FUNCTION TEST ABNORMAL
     Route: 048
  15. PREDNISOLONE [Concomitant]
     Indication: RHEUMATOID ARTHRITIS
     Route: 065
     Dates: start: 20120723, end: 20120927
  16. PREDNISOLONE [Concomitant]
     Indication: RHEUMATOID ARTHRITIS
     Route: 065
     Dates: start: 20120628, end: 20120712
  17. PREDNISOLONE [Concomitant]
     Indication: RHEUMATOID ARTHRITIS
     Route: 065
     Dates: start: 20120713, end: 20120722

REACTIONS (2)
  - Enteritis infectious [Recovering/Resolving]
  - Interstitial lung disease [Recovering/Resolving]
